FAERS Safety Report 14942820 (Version 1)
Quarter: 2018Q2

REPORT INFORMATION
  Report Type: Spontaneous
  Country: US (occurrence: US)
  Receive Date: 20180528
  Receipt Date: 20180528
  Transmission Date: 20180711
  Serious: Yes (Hospitalization)
  Sender: FDA-Public Use
  Company Number: US-B.I. PHARMACEUTICALS,INC./RIDGEFIELD-2018-BI-027660

PATIENT
  Sex: Female

DRUGS (2)
  1. CARTIA XT [Concomitant]
     Active Substance: DILTIAZEM HYDROCHLORIDE
     Indication: PRODUCT USED FOR UNKNOWN INDICATION
     Route: 065
  2. ATROVENT [Suspect]
     Active Substance: IPRATROPIUM BROMIDE
     Indication: ASTHMA
     Dosage: ;FORMULATION: INHALATION AEROSOL;  ACTION(S) TAKEN W/ PRODUCT: DOSE NOT CHANGED
     Route: 055
     Dates: start: 20171216

REACTIONS (7)
  - Endocarditis [Unknown]
  - Chronic obstructive pulmonary disease [Not Recovered/Not Resolved]
  - Gait inability [Unknown]
  - Pneumonia [Unknown]
  - Streptococcal infection [Unknown]
  - Blood glucose increased [Unknown]
  - Anaemia [Unknown]

NARRATIVE: CASE EVENT DATE: 2018
